FAERS Safety Report 23401262 (Version 1)
Quarter: 2024Q1

REPORT INFORMATION
  Report Type: Spontaneous
  Country: CA (occurrence: None)
  Receive Date: 20240115
  Receipt Date: 20240115
  Transmission Date: 20240410
  Serious: Yes (Other)
  Sender: FDA-Public Use
  Company Number: CA-ROCHE-3487639

PATIENT
  Age: 81 Year
  Sex: Female

DRUGS (7)
  1. RITUXIMAB [Suspect]
     Active Substance: RITUXIMAB
     Indication: Rheumatoid arthritis
     Route: 065
  2. RITUXIMAB [Suspect]
     Active Substance: RITUXIMAB
     Indication: Rheumatoid arthritis
     Route: 042
  3. RISEDRONATE SODIUM [Concomitant]
     Active Substance: RISEDRONATE SODIUM
  4. RISEDRONATE SODIUM [Concomitant]
     Active Substance: RISEDRONATE SODIUM
  5. PREVACID [Concomitant]
     Active Substance: LANSOPRAZOLE
  6. PREDNISONE [Concomitant]
     Active Substance: PREDNISONE
     Route: 048
  7. POTASSIUM [Concomitant]
     Active Substance: POTASSIUM
     Route: 048

REACTIONS (4)
  - C-reactive protein increased [Unknown]
  - Pneumonia [Unknown]
  - Red blood cell sedimentation rate increased [Unknown]
  - Treatment failure [Unknown]
